FAERS Safety Report 12918648 (Version 1)
Quarter: 2016Q4

REPORT INFORMATION
  Report Type: Report from Study
  Country: US (occurrence: US)
  Receive Date: 20161107
  Receipt Date: 20161107
  Transmission Date: 20170207
  Serious: No
  Sender: FDA-Public Use
  Company Number: US-THERATECHNOLOGIES, INC.-TH-2016-00136

PATIENT
  Sex: Male
  Weight: 90.8 kg

DRUGS (3)
  1. OMEPRAZOLE. [Concomitant]
     Active Substance: OMEPRAZOLE
     Dosage: UNSPECIFIED
  2. EGRIFTA [Suspect]
     Active Substance: TESAMORELIN
     Indication: WAIST CIRCUMFERENCE INCREASED
     Dosage: 2 MILLIGRAM
     Route: 058
     Dates: start: 201405, end: 201605
  3. UNSPECIFIED [Concomitant]
     Active Substance: UNSPECIFIED INGREDIENT
     Indication: DIABETES MELLITUS
     Dosage: UNSPECIFIED

REACTIONS (1)
  - Weight increased [Not Recovered/Not Resolved]
